FAERS Safety Report 4420869-4 (Version None)
Quarter: 2004Q3

REPORT INFORMATION
  Report Type: 
  Country: None (occurrence: None)
  Receive Date: 20040809
  Receipt Date: 20040730
  Transmission Date: 20050211
  Serious: Yes (Hospitalization)
  Sender: FDA-Public Use
  Company Number: JP-MERCK-0408USA00292

PATIENT
  Age: 71 Year
  Sex: Female

DRUGS (4)
  1. MAINTATE [Concomitant]
     Route: 048
     Dates: start: 20040601, end: 20040729
  2. COZAAR [Suspect]
     Indication: HYPERTENSION
     Route: 048
     Dates: start: 20020902, end: 20040729
  3. PRAVASTATIN [Concomitant]
     Route: 048
     Dates: start: 19980101, end: 20040729
  4. HALCION [Concomitant]
     Route: 048
     Dates: start: 19980101, end: 20040729

REACTIONS (3)
  - APLASIA PURE RED CELL [None]
  - DIZZINESS [None]
  - PALPITATIONS [None]
